FAERS Safety Report 7503410-9 (Version None)
Quarter: 2011Q2

REPORT INFORMATION
  Report Type: 
  Country: None (occurrence: None)
  Receive Date: 20110525
  Receipt Date: 20110519
  Transmission Date: 20111010
  Serious: Yes (Other)
  Sender: FDA-Public Use
  Company Number: B0720258A

PATIENT
  Sex: Male

DRUGS (3)
  1. TRUVADA [Suspect]
     Indication: HIV INFECTION
     Dosage: 200MG PER DAY
     Route: 048
     Dates: start: 20090316, end: 20101214
  2. CELSENTRI [Suspect]
     Indication: HIV INFECTION
     Dosage: 300MG TWICE PER DAY
     Route: 048
     Dates: start: 20101125
  3. VITAMIN D [Concomitant]
     Route: 065

REACTIONS (7)
  - PERIPHERAL COLDNESS [None]
  - HYPERAESTHESIA [None]
  - PARAESTHESIA [None]
  - CONSTIPATION [None]
  - ASTHENIA [None]
  - FLATULENCE [None]
  - XEROSIS [None]
